FAERS Safety Report 18968398 (Version 1)
Quarter: 2021Q1

REPORT INFORMATION
  Report Type: Spontaneous
  Country: US (occurrence: US)
  Receive Date: 20210303
  Receipt Date: 20210303
  Transmission Date: 20210420
  Serious: Yes (Death)
  Sender: FDA-Public Use
  Company Number: None

PATIENT
  Age: 90 Year
  Sex: Female
  Weight: 81.65 kg

DRUGS (2)
  1. REMDESIVIR 100 MG [Suspect]
     Active Substance: REMDESIVIR
     Indication: COVID-19 TREATMENT
     Dosage: ?          OTHER DOSE:200MGX1, 100MG;OTHER ROUTE:IVPB?
     Dates: start: 20201218, end: 20201222
  2. ROCEPHIN [Suspect]
     Active Substance: CEFTRIAXONE SODIUM
     Dosage: ?          OTHER ROUTE:IVPB?
     Dates: start: 20201218, end: 20201222

REACTIONS (2)
  - Death [None]
  - COVID-19 [None]

NARRATIVE: CASE EVENT DATE: 20201222
